FAERS Safety Report 14740422 (Version 3)
Quarter: 2018Q4

REPORT INFORMATION
  Report Type: Spontaneous
  Country: GB (occurrence: GB)
  Receive Date: 20180410
  Receipt Date: 20181204
  Transmission Date: 20190204
  Serious: Yes (Disabling)
  Sender: FDA-Public Use
  Company Number: GB-MICRO LABS LIMITED-BB2018-00482

PATIENT
  Age: 71 Year
  Sex: Female

DRUGS (8)
  1. RAMIPRIL. [Suspect]
     Active Substance: RAMIPRIL
  2. PROPRANOLOL [Suspect]
     Active Substance: PROPRANOLOL HYDROCHLORIDE
  3. QUININE SULFATE. [Suspect]
     Active Substance: QUININE SULFATE
  4. ZAPAIN [Suspect]
     Active Substance: ACETAMINOPHEN\CODEINE PHOSPHATE
     Dosage: 30/500
  5. SIMVASTATIN. [Suspect]
     Active Substance: SIMVASTATIN
  6. DITROPAN [Suspect]
     Active Substance: OXYBUTYNIN CHLORIDE
  7. NEUPRO [Concomitant]
     Active Substance: ROTIGOTINE
     Route: 062
  8. MADOPAR [Suspect]
     Active Substance: BENSERAZIDE HYDROCHLORIDE\LEVODOPA

REACTIONS (2)
  - Tooth loss [Not Recovered/Not Resolved]
  - Dry mouth [Unknown]

NARRATIVE: CASE EVENT DATE: 2017
